FAERS Safety Report 8561190 (Version 5)
Quarter: 2015Q3

REPORT INFORMATION
  Report Type: Spontaneous
  Country: US (occurrence: None)
  Receive Date: 20120508
  Receipt Date: 20150812
  Transmission Date: 20151125
  Serious: Yes (Other)
  Sender: FDA-Public Use
  Company Number: ADR-2012-00823

PATIENT
  Sex: Male

DRUGS (2)
  1. BACLOFEN. [Suspect]
     Active Substance: BACLOFEN
     Indication: CEREBROVASCULAR ACCIDENT
  2. BACLOFEN. [Suspect]
     Active Substance: BACLOFEN

REACTIONS (4)
  - Delirium [None]
  - Drug hypersensitivity [None]
  - Amnesia [None]
  - Adverse drug reaction [None]
